FAERS Safety Report 14751295 (Version 1)
Quarter: 2018Q2

REPORT INFORMATION
  Report Type: Spontaneous
  Country: US (occurrence: US)
  Receive Date: 20180406
  Receipt Date: 20180406
  Transmission Date: 20180711
  Serious: Yes (Hospitalization)
  Sender: FDA-Public Use
  Company Number: None

PATIENT
  Sex: Female
  Weight: 75.5 kg

DRUGS (4)
  1. CARBOPLATIN. [Suspect]
     Active Substance: CARBOPLATIN
     Dates: end: 20120920
  2. CYCLOPHOSPHAMIDE. [Suspect]
     Active Substance: CYCLOPHOSPHAMIDE
     Dates: end: 20121206
  3. DOXORUBICIN HYDROCHLORIDE. [Suspect]
     Active Substance: DOXORUBICIN HYDROCHLORIDE
     Dates: end: 20121206
  4. TAXOL [Suspect]
     Active Substance: PACLITAXEL
     Dates: end: 20121018

REACTIONS (6)
  - Bradycardia [None]
  - Syncope [None]
  - Cardiomegaly [None]
  - Atrioventricular block complete [None]
  - Cardiac failure congestive [None]
  - Ventricular fibrillation [None]

NARRATIVE: CASE EVENT DATE: 20161101
